FAERS Safety Report 23966971 (Version 1)
Quarter: 2024Q2

REPORT INFORMATION
  Report Type: Spontaneous
  Country: GB (occurrence: GB)
  Receive Date: 20240612
  Receipt Date: 20240612
  Transmission Date: 20240715
  Serious: Yes (Hospitalization, Other)
  Sender: FDA-Public Use
  Company Number: GB-AMAROX PHARMA GMBH-AMR2022GB02614

PATIENT
  Age: 73 Year
  Sex: Male

DRUGS (1)
  1. AMLODIPINE [Suspect]
     Active Substance: AMLODIPINE BESYLATE
     Indication: Hypertension
     Dosage: UNK; AMLODIPINE BESILATE
     Route: 065

REACTIONS (1)
  - Hyponatraemia [Recovered/Resolved]
